FAERS Safety Report 25711176 (Version 1)
Quarter: 2025Q3

REPORT INFORMATION
  Report Type: Spontaneous
  Country: EU (occurrence: EU)
  Receive Date: 20250821
  Receipt Date: 20250821
  Transmission Date: 20251021
  Serious: Yes (Life-Threatening, Other)
  Sender: CLINIGEN
  Company Number: None

PATIENT

DRUGS (2)
  1. FOSCARNET SODIUM [Interacting]
     Active Substance: FOSCARNET SODIUM
     Indication: Cytomegalovirus chorioretinitis
     Route: 042
     Dates: start: 20250602, end: 20250605
  2. LEVOFLOXACIN [Interacting]
     Active Substance: LEVOFLOXACIN
     Indication: Pneumonia pneumococcal
     Route: 048
     Dates: start: 20250602, end: 20250606

REACTIONS (2)
  - Generalised tonic-clonic seizure [Recovered/Resolved]
  - Cardio-respiratory arrest [Recovered/Resolved]

NARRATIVE: CASE EVENT DATE: 20250606
